FAERS Safety Report 9150638 (Version 1)
Quarter: 2013Q1

REPORT INFORMATION
  Report Type: Spontaneous
  Country: US (occurrence: US)
  Receive Date: 20130308
  Receipt Date: 20130308
  Transmission Date: 20140127
  Serious: No
  Sender: FDA-Public Use
  Company Number: US-009507513-1303USA003521

PATIENT
  Age: 20 Year
  Sex: Female
  Weight: 74.47 kg

DRUGS (1)
  1. IMPLANON [Suspect]
     Dosage: UNK
     Route: 059
     Dates: start: 20091028

REACTIONS (2)
  - Medical device complication [Unknown]
  - Incorrect drug administration duration [Unknown]
